FAERS Safety Report 19069870 (Version 3)
Quarter: 2021Q2

REPORT INFORMATION
  Report Type: Report from Study
  Country: GB (occurrence: GB)
  Receive Date: 20210329
  Receipt Date: 20210419
  Transmission Date: 20210717
  Serious: Yes (Life-Threatening, Hospitalization, Other)
  Sender: FDA-Public Use
  Company Number: GB-BRISTOL-MYERS SQUIBB COMPANY-BMS-2021-030421

PATIENT
  Age: 78 Year
  Sex: Male
  Weight: 72.8 kg

DRUGS (8)
  1. ORAMORPH SR SUSTAINED RELEASE [Concomitant]
     Active Substance: MORPHINE SULFATE
     Indication: PAIN
     Dosage: 10 MILLIGRAM PRN
     Route: 048
     Dates: start: 202103
  2. CALCI?D [Concomitant]
     Active Substance: CALCIUM CARBONATE\CHOLECALCIFEROL
     Indication: BONE LOSS
     Dosage: 1 IN 1 DAY (QD)
     Route: 048
     Dates: start: 2019
  3. NIVOLUMAB [Suspect]
     Active Substance: NIVOLUMAB
     Indication: METASTATIC MALIGNANT MELANOMA
     Dosage: 240 MILLIGRAM, Q2WK
     Route: 042
     Dates: start: 20210322, end: 20210322
  4. DALTEPARIN [Concomitant]
     Active Substance: DALTEPARIN
     Indication: THROMBOSIS PROPHYLAXIS
     Dosage: 15000 INTERNATIONAL UNIT, QD
     Route: 058
     Dates: start: 202103
  5. RP2 [Suspect]
     Active Substance: INVESTIGATIONAL PRODUCT
     Indication: METASTATIC MALIGNANT MELANOMA
     Dosage: 1X10E6 PFU/ML 1 IN 2 WEEK
     Route: 036
     Dates: start: 20210309, end: 20210309
  6. RP2 [Suspect]
     Active Substance: INVESTIGATIONAL PRODUCT
     Dosage: 1X10E7 PFU/ML 1 IN 2 WEEK
     Route: 036
     Dates: start: 20210322, end: 20210322
  7. HYDROCORTISONE. [Concomitant]
     Active Substance: HYDROCORTISONE
     Indication: HYPOTHYROIDISM
     Dosage: 20 MG/ 10 MG/ 10 MG 3 IN 1 D
     Route: 048
     Dates: start: 2019
  8. LEVOTHYROXINE. [Concomitant]
     Active Substance: LEVOTHYROXINE
     Indication: HYPOTHYROIDISM
     Dosage: 75 MILLIGRAM, QD
     Route: 065
     Dates: start: 2019

REACTIONS (2)
  - Infusion related reaction [Recovered/Resolved]
  - Post procedural haemorrhage [Recovered/Resolved]

NARRATIVE: CASE EVENT DATE: 20210322
